FAERS Safety Report 9228264 (Version 1)
Quarter: 2013Q1

REPORT INFORMATION
  Report Type: Spontaneous
  Country: US (occurrence: None)
  Receive Date: 20121005
  Receipt Date: 20121005
  Transmission Date: 20140127
  Serious: Yes (Other)
  Sender: FDA-Public Use
  Company Number: E2B_00000244

PATIENT
  Age: 50 Year
  Sex: Female
  Weight: 71.22 kg

DRUGS (4)
  1. IMIPRAMINE HYDROCHLORIDE [Suspect]
     Indication: DEPRESSION
     Route: 048
     Dates: start: 20120319, end: 20120504
  2. FEXOFENADINE (ALLEGRA) (TABLETS) [Concomitant]
  3. CONJUGATED ESTROGENS AND MEDROXYPROGESTERONE (PREMPRO) (TABLETS) [Concomitant]
  4. GABAPENTIN (CAPSULES) [Concomitant]

REACTIONS (2)
  - Major depression [None]
  - Drug ineffective [None]
